FAERS Safety Report 18905211 (Version 5)
Quarter: 2021Q3

REPORT INFORMATION
  Report Type: Spontaneous
  Country: JP (occurrence: JP)
  Receive Date: 20210217
  Receipt Date: 20210903
  Transmission Date: 20211014
  Serious: Yes (Death, Hospitalization, Other)
  Sender: FDA-Public Use
  Company Number: JP-OTSUKA-2021_004075

PATIENT
  Age: 87 Year
  Sex: Male

DRUGS (5)
  1. GRAMALIL [Concomitant]
     Active Substance: TIAPRIDE HYDROCHLORIDE
     Dosage: 50 MG, QD
     Route: 048
     Dates: start: 20201222, end: 20210118
  2. GRAMALIL [Concomitant]
     Active Substance: TIAPRIDE HYDROCHLORIDE
     Indication: PRODUCT USED FOR UNKNOWN INDICATION
     Dosage: 75 MG, QD
     Route: 048
     Dates: end: 20201221
  3. ABILIFY [Suspect]
     Active Substance: ARIPIPRAZOLE
     Indication: SCHIZOPHRENIA
     Dosage: 12 MG, DAILY DOSE
     Route: 048
     Dates: start: 20201222, end: 20210119
  4. BENZALIN [NITRAZEPAM] [Suspect]
     Active Substance: NITRAZEPAM
     Indication: NEUROPSYCHIATRIC SYMPTOMS
     Dosage: 5 MG, QD
     Route: 048
     Dates: start: 20201222, end: 20210118
  5. ABILIFY [Suspect]
     Active Substance: ARIPIPRAZOLE
     Indication: NEUROPSYCHIATRIC SYMPTOMS

REACTIONS (6)
  - Rhabdomyolysis [Recovering/Resolving]
  - Cardiac failure acute [Fatal]
  - Pneumonia aspiration [Recovering/Resolving]
  - Schizophrenia [Not Recovered/Not Resolved]
  - Drug-induced liver injury [Recovering/Resolving]
  - Hypernatraemia [Recovering/Resolving]

NARRATIVE: CASE EVENT DATE: 20210118
